FAERS Safety Report 14009080 (Version 18)
Quarter: 2019Q4

REPORT INFORMATION
  Report Type: Spontaneous
  Country: CA (occurrence: CA)
  Receive Date: 20170925
  Receipt Date: 20191129
  Transmission Date: 20200122
  Serious: Yes (Other)
  Sender: FDA-Public Use
  Company Number: CA-CELLTRION INC.-2017CA012486

PATIENT

DRUGS (29)
  1. INFLECTRA [Suspect]
     Active Substance: INFLIXIMAB-DYYB
     Dosage: 500 MG, (EVERY 4 WEEKS)
     Route: 042
  2. LAX-A-DAY [Concomitant]
     Dosage: HALF PACK, ONCE A DAY
     Route: 065
  3. INFLECTRA [Suspect]
     Active Substance: INFLIXIMAB-DYYB
     Indication: CROHN^S DISEASE
     Dosage: 500 MG, (EVERY 4 WEEKS)
     Route: 042
     Dates: start: 20170206, end: 20180711
  4. INFLECTRA [Suspect]
     Active Substance: INFLIXIMAB-DYYB
     Dosage: 420MG (5MG/KG), EVERY 4 WEEKS
     Route: 042
     Dates: start: 20180808, end: 20190611
  5. INFLECTRA [Suspect]
     Active Substance: INFLIXIMAB-DYYB
     Dosage: 420MG (5 MG/KG)  EVERY 4 WEEKS
     Route: 042
     Dates: start: 20180905
  6. INFLECTRA [Suspect]
     Active Substance: INFLIXIMAB-DYYB
     Dosage: 420MG (5 MG/KG)  EVERY 4 WEEKS
     Route: 042
     Dates: start: 20190219
  7. ZOPICLONE [Concomitant]
     Active Substance: ZOPICLONE
     Dosage: 7.5 MG, AT BEDTIME
     Route: 048
  8. METHOTREXATE. [Concomitant]
     Active Substance: METHOTREXATE
     Dosage: 15 MG, WEEKLY
     Route: 048
  9. ACETAMINOPHEN. [Concomitant]
     Active Substance: ACETAMINOPHEN
     Indication: PREMEDICATION
     Dosage: 650 MG, UNK
     Dates: start: 20190809
  10. INFLECTRA [Suspect]
     Active Substance: INFLIXIMAB-DYYB
     Dosage: 600 MG, (EVERY 4 WEEKS)
     Route: 042
     Dates: start: 20170206, end: 20180711
  11. INFLECTRA [Suspect]
     Active Substance: INFLIXIMAB-DYYB
     Dosage: 420MG (5 MG/KG)  EVERY 4 WEEKS
     Route: 042
     Dates: start: 20190809
  12. GABAPENTIN. [Concomitant]
     Active Substance: GABAPENTIN
     Dosage: 1.8 MG, 2 TABLET AM; 1 TABLETS PM, 3 TABLETS AT BEDTIME
     Route: 048
  13. CORTIFOAM [Concomitant]
     Active Substance: HYDROCORTISONE ACETATE
     Indication: PAIN
     Dosage: UNK
  14. FOLIC ACID. [Concomitant]
     Active Substance: FOLIC ACID
     Dosage: UNK, 6 DAYS A WEEK
  15. INFLECTRA [Suspect]
     Active Substance: INFLIXIMAB-DYYB
     Dosage: 420MG (5 MG/KG)  EVERY 4 WEEKS
     Route: 042
     Dates: start: 20181128
  16. CORTIFOAM [Concomitant]
     Active Substance: HYDROCORTISONE ACETATE
     Indication: ABDOMINAL PAIN
     Dosage: UNK, TWICE A DAY
     Route: 054
  17. INFLECTRA [Suspect]
     Active Substance: INFLIXIMAB-DYYB
     Dosage: 400 MG, (EVERY 6 WEEKS)
     Route: 042
  18. INFLECTRA [Suspect]
     Active Substance: INFLIXIMAB-DYYB
     Dosage: 420MG (5 MG/KG)  EVERY 4 WEEKS
     Route: 042
     Dates: start: 20190122
  19. INFLECTRA [Suspect]
     Active Substance: INFLIXIMAB-DYYB
     Dosage: 500MG (5 MG/KG)  EVERY 4 WEEKS
     Route: 042
     Dates: start: 20190710
  20. HYDROCHLOROTHIAZIDE. [Concomitant]
     Active Substance: HYDROCHLOROTHIAZIDE
     Dosage: 2.5 MG, 1X/DAY
     Route: 048
  21. INFLECTRA [Suspect]
     Active Substance: INFLIXIMAB-DYYB
     Dosage: 600 MG, (EVERY 4 WEEKS)
     Route: 042
     Dates: start: 20180220, end: 20180711
  22. INFLECTRA [Suspect]
     Active Substance: INFLIXIMAB-DYYB
     Dosage: 500MG  EVERY 4 WEEKS
     Route: 042
     Dates: start: 20191002
  23. HYDROMORPHONE [Concomitant]
     Active Substance: HYDROMORPHONE
     Indication: ABDOMINAL PAIN
     Dosage: 0.5 MG, 3-4 TIMES A WEEK, AS NEEDED
     Route: 065
  24. MODULON [Concomitant]
     Active Substance: TRIMEBUTINE MALEATE
     Dosage: 1 DF(TABLET), 2X/DAY
     Route: 048
  25. RANITIDINE. [Concomitant]
     Active Substance: RANITIDINE
     Dosage: 150 MG, 1X/DAY
     Route: 048
  26. INFLECTRA [Suspect]
     Active Substance: INFLIXIMAB-DYYB
     Dosage: 500MG  6 WEEKS AND 2 DAYS
     Route: 042
     Dates: start: 20191115
  27. VENLAFAXINE [Concomitant]
     Active Substance: VENLAFAXINE HYDROCHLORIDE
     Dosage: 100 MG, 1X/DAY
     Route: 048
  28. LEVOTHYROXINE. [Concomitant]
     Active Substance: LEVOTHYROXINE
     Dosage: 0.05 MG, 1X/DAY
     Route: 048
  29. HYDROCORTISONE. [Concomitant]
     Active Substance: HYDROCORTISONE
     Indication: PREMEDICATION
     Dosage: 100 MG, UNK
     Route: 042
     Dates: start: 20190809

REACTIONS (16)
  - Off label use [Unknown]
  - Haemorrhage [Unknown]
  - Anal fissure [Not Recovered/Not Resolved]
  - Vaginal flatulence [Unknown]
  - Drug level increased [Not Recovered/Not Resolved]
  - Urinary tract infection [Not Recovered/Not Resolved]
  - Hair growth abnormal [Recovered/Resolved]
  - Incontinence [Not Recovered/Not Resolved]
  - Infected fistula [Unknown]
  - Colitis [Recovering/Resolving]
  - Condition aggravated [Recovering/Resolving]
  - Vaginal discharge [Unknown]
  - Vaginal fistula [Not Recovered/Not Resolved]
  - Therapeutic response unexpected [Recovered/Resolved]
  - Oxygen saturation abnormal [Unknown]
  - Pain [Unknown]

NARRATIVE: CASE EVENT DATE: 20170206
